FAERS Safety Report 7930464-8 (Version None)
Quarter: 2011Q4

REPORT INFORMATION
  Report Type: 
  Country: None (occurrence: None)
  Receive Date: 20111108
  Receipt Date: 20101020
  Transmission Date: 20120403
  Serious: Yes (Disabling)
  Sender: FDA-Public Use
  Company Number: PHHY2010US71924

PATIENT
  Age: 65 Year
  Sex: Female

DRUGS (1)
  1. ZOMETA [Suspect]
     Indication: OSTEOPOROSIS
     Dosage: 4 MG/YEAR, INTRAVENOUS

REACTIONS (2)
  - UVEITIS [None]
  - BONE PAIN [None]
